FAERS Safety Report 7498112-1 (Version None)
Quarter: 2011Q2

REPORT INFORMATION
  Report Type: 
  Country: None (occurrence: None)
  Receive Date: 20110524
  Receipt Date: 20110513
  Transmission Date: 20111010
  Serious: No
  Sender: FDA-Public Use
  Company Number: US-BIOGENIDEC-2011BI018410

PATIENT
  Age: 27 Year
  Sex: Female

DRUGS (4)
  1. TEGRETOL [Concomitant]
  2. BACLOFEN [Concomitant]
  3. CYMBALTA [Concomitant]
  4. TYSABRI [Suspect]
     Indication: MULTIPLE SCLEROSIS
     Route: 042
     Dates: start: 20110406

REACTIONS (3)
  - FATIGUE [None]
  - SOMNOLENCE [None]
  - APATHY [None]
